FAERS Safety Report 13796212 (Version 1)
Quarter: 2017Q3

REPORT INFORMATION
  Report Type: Report from Study
  Country: ZA (occurrence: ZA)
  Receive Date: 20170726
  Receipt Date: 20170726
  Transmission Date: 20171127
  Serious: Yes (Death, Hospitalization)
  Sender: FDA-Public Use
  Company Number: PHHY2017ZA089087

PATIENT
  Sex: Male

DRUGS (1)
  1. TAREG [Suspect]
     Active Substance: VALSARTAN
     Indication: HYPERTENSION
     Dosage: 80 MG, UNK
     Route: 048

REACTIONS (4)
  - Cardiac failure [Fatal]
  - Lung disorder [Fatal]
  - Hypotension [Recovering/Resolving]
  - Renal failure [Fatal]
